FAERS Safety Report 5458034-4 (Version None)
Quarter: 2007Q3

REPORT INFORMATION
  Report Type: 
  Country: None (occurrence: None)
  Receive Date: 20070919
  Receipt Date: 20070917
  Transmission Date: 20080115
  Serious: Yes (Life-Threatening, Hospitalization)
  Sender: FDA-Public Use
  Company Number: PHNR2007AU01871

PATIENT
  Age: 2 Year
  Sex: Male

DRUGS (1)
  1. SLOW-K [Suspect]
     Dosage: UNK, ONCE/SINGLE
     Route: 048

REACTIONS (1)
  - ACCIDENTAL EXPOSURE [None]
